FAERS Safety Report 4722630-X (Version None)
Quarter: 2005Q3

REPORT INFORMATION
  Report Type: 
  Country: None (occurrence: None)
  Receive Date: 20050719
  Receipt Date: 20040929
  Transmission Date: 20060218
  Serious: Yes (Hospitalization)
  Sender: FDA-Public Use
  Company Number: 2004236389US

PATIENT
  Age: 59 Year
  Sex: Female

DRUGS (3)
  1. CELEBREX [Suspect]
     Indication: ARTHRITIS
     Dosage: 200 MG, QD, ORAL; 200 MG, BID, ORAL
     Route: 048
     Dates: start: 20000616
  2. CELEBREX [Suspect]
     Indication: ARTHRITIS
     Dosage: 200 MG, QD, ORAL; 200 MG, BID, ORAL
     Route: 048
     Dates: start: 20010116
  3. FOLIC ACID [Concomitant]

REACTIONS (1)
  - RENAL FAILURE [None]
